FAERS Safety Report 5167634-0 (Version None)
Quarter: 2006Q4

REPORT INFORMATION
  Report Type: 
  Country: None (occurrence: None)
  Receive Date: 20061204
  Receipt Date: 20061204
  Transmission Date: 20070319
  Serious: Yes (Disabling)
  Sender: FDA-Public Use
  Company Number: None

PATIENT
  Age: 55 Year
  Sex: Male
  Weight: 75 kg

DRUGS (2)
  1. CIPROFLOXACIN INJECTION, USP 400 MG/40 ML HOSPIRA, INC [Suspect]
     Indication: CELLULITIS
     Dosage: CIPROFLOXACIN 400 MG EVERY 12 HOURS IV
     Route: 042
     Dates: start: 20061119, end: 20061119
  2. CLINDAMYCIN INJECTION, USP 600MG/4ML HOSPIRA, INC [Suspect]
     Indication: CELLULITIS
     Dosage: CLINDAMYCIN 600MG EVERY 6 HOURS IV
     Route: 042
     Dates: start: 20061119, end: 20061119

REACTIONS (4)
  - CHILLS [None]
  - HYPERSENSITIVITY [None]
  - RASH [None]
  - SINUS TACHYCARDIA [None]
